FAERS Safety Report 7518457-6 (Version None)
Quarter: 2011Q2

REPORT INFORMATION
  Report Type: 
  Country: None (occurrence: None)
  Receive Date: 20110601
  Receipt Date: 20110601
  Transmission Date: 20111010
  Serious: Yes (Other)
  Sender: FDA-Public Use
  Company Number: None

PATIENT
  Sex: Female
  Weight: 74.8435 kg

DRUGS (1)
  1. XOLAIR [Suspect]
     Indication: ASTHMA
     Dosage: 150 MG MONTHLY SQ
     Route: 058
     Dates: start: 20101204, end: 20110504

REACTIONS (4)
  - MITRAL VALVE PROLAPSE [None]
  - PULMONARY HYPERTENSION [None]
  - ARTHRALGIA [None]
  - DIZZINESS [None]
